FAERS Safety Report 14096582 (Version 1)
Quarter: 2017Q4

REPORT INFORMATION
  Report Type: Spontaneous
  Country: US (occurrence: US)
  Receive Date: 20171017
  Receipt Date: 20171017
  Transmission Date: 20180321
  Serious: Yes (Other)
  Sender: FDA-Public Use
  Company Number: US-ACCORD-059943

PATIENT
  Age: 31 Year
  Sex: Male

DRUGS (2)
  1. ETOPOSIDE. [Suspect]
     Active Substance: ETOPOSIDE
     Indication: GERM CELL CANCER
  2. CARBOPLATIN. [Suspect]
     Active Substance: CARBOPLATIN
     Indication: GERM CELL CANCER

REACTIONS (6)
  - Off label use [Unknown]
  - Febrile neutropenia [Unknown]
  - Swelling face [Unknown]
  - Diarrhoea [Unknown]
  - Fatigue [Unknown]
  - Pancytopenia [Recovered/Resolved]
